FAERS Safety Report 16011094 (Version 1)
Quarter: 2019Q1

REPORT INFORMATION
  Report Type: Report from Study
  Country: None (occurrence: US)
  Receive Date: 20190227
  Receipt Date: 20190227
  Transmission Date: 20190418
  Serious: Yes (Other)
  Sender: FDA-Public Use
  Company Number: US-ABBVIE-19K-163-2617982-00

PATIENT
  Age: 46 Year
  Sex: Female

DRUGS (2)
  1. HUMIRA [Suspect]
     Active Substance: ADALIMUMAB
     Indication: RHEUMATOID ARTHRITIS
     Dosage: CITRATE FREE
     Route: 058
     Dates: start: 2018, end: 20190202
  2. ALCOHOL. [Suspect]
     Active Substance: ALCOHOL
     Indication: PRODUCT USED FOR UNKNOWN INDICATION
     Route: 065

REACTIONS (12)
  - Pain [Unknown]
  - Muscular weakness [Not Recovered/Not Resolved]
  - Alcohol intolerance [Not Recovered/Not Resolved]
  - Fatigue [Unknown]
  - Glycosylated haemoglobin increased [Not Recovered/Not Resolved]
  - Migraine [Not Recovered/Not Resolved]
  - Carpal tunnel syndrome [Unknown]
  - Headache [Unknown]
  - Pre-existing condition improved [Unknown]
  - Osteoarthritis [Not Recovered/Not Resolved]
  - Therapeutic response unexpected [Unknown]
  - Blood glucose increased [Unknown]

NARRATIVE: CASE EVENT DATE: 201802
